FAERS Safety Report 4978911-8 (Version None)
Quarter: 2006Q2

REPORT INFORMATION
  Report Type: 
  Country: None (occurrence: None)
  Receive Date: 20060417
  Receipt Date: 20060403
  Transmission Date: 20061013
  Serious: Yes (Death, Other)
  Sender: FDA-Public Use
  Company Number: 2006034801

PATIENT
  Age: 58 Year
  Sex: Male
  Weight: 58 kg

DRUGS (7)
  1. VFEND [Suspect]
     Indication: BRONCHOPULMONARY ASPERGILLOSIS
     Dosage: 400 MG (2 IN 1 D), ORAL
     Route: 048
     Dates: start: 20060126, end: 20060220
  2. LANSOPRAZOLE [Suspect]
     Indication: REFLUX OESOPHAGITIS
     Dosage: 30 MG (30 MG, 1 IN 1 D), ORAL
     Route: 048
     Dates: start: 20060111, end: 20060220
  3. SULFAMETHOXAZOLE + TRIMETHOPRIM [Concomitant]
  4. ALENDRONATE SODIUM [Concomitant]
  5. PREDNISOLONE [Concomitant]
  6. LASIX [Concomitant]
  7. NEUPOGEN [Suspect]
     Indication: AGRANULOCYTOSIS
     Dosage: 300 MCG
     Dates: start: 20060225, end: 20060301

REACTIONS (12)
  - AGRANULOCYTOSIS [None]
  - BACK PAIN [None]
  - CANDIDA SEROLOGY POSITIVE [None]
  - CYTOKINE STORM [None]
  - FUNGUS SEROLOGY TEST POSITIVE [None]
  - HAEMOGLOBIN DECREASED [None]
  - INTERSTITIAL LUNG DISEASE [None]
  - LOSS OF CONSCIOUSNESS [None]
  - PLATELET COUNT DECREASED [None]
  - RED BLOOD CELL COUNT DECREASED [None]
  - REFLUX OESOPHAGITIS [None]
  - WHITE BLOOD CELL COUNT DECREASED [None]
